FAERS Safety Report 9332494 (Version 2)
Quarter: 2013Q3

REPORT INFORMATION
  Report Type: Spontaneous
  Country: BE (occurrence: BE)
  Receive Date: 20130606
  Receipt Date: 20130701
  Transmission Date: 20140515
  Serious: Yes (Other)
  Sender: FDA-Public Use
  Company Number: BE-JNJFOC-20130520941

PATIENT
  Age: 25 Year
  Sex: Female
  Weight: 55.2 kg

DRUGS (5)
  1. XARELTO [Suspect]
     Indication: PULMONARY EMBOLISM
     Route: 048
     Dates: start: 20130228, end: 201305
  2. XARELTO [Suspect]
     Indication: DEEP VEIN THROMBOSIS
     Route: 048
     Dates: start: 20130228, end: 201305
  3. DIANE 35 [Suspect]
     Indication: CONTRACEPTION
     Route: 065
     Dates: start: 201003, end: 20121208
  4. IMURAN [Concomitant]
     Route: 065
  5. NEXIAM [Concomitant]
     Indication: PRODUCT USED FOR UNKNOWN INDICATION
     Route: 065

REACTIONS (4)
  - Deep vein thrombosis [Recovered/Resolved]
  - Pulmonary embolism [Recovered/Resolved]
  - Alopecia [Recovered/Resolved]
  - Acne [Recovering/Resolving]
